FAERS Safety Report 5311672-1 (Version None)
Quarter: 2007Q2

REPORT INFORMATION
  Report Type: 
  Country: None (occurrence: None)
  Receive Date: 20070430
  Receipt Date: 20061129
  Transmission Date: 20071010
  Serious: No
  Sender: FDA-Public Use
  Company Number: 2006UW26789

PATIENT
  Age: 33 Year
  Sex: Female

DRUGS (2)
  1. ZOMIG [Suspect]
     Indication: MIGRAINE
     Dosage: 2.5 MG 2 COUNT SAMPLE BLISTER
     Route: 048
  2. BIRTH CONTROL PILLS [Concomitant]

REACTIONS (1)
  - HYPERAESTHESIA [None]
